FAERS Safety Report 8011455-8 (Version None)
Quarter: 2011Q4

REPORT INFORMATION
  Report Type: 
  Country: None (occurrence: None)
  Receive Date: 20111228
  Receipt Date: 20111215
  Transmission Date: 20120403
  Serious: Yes (Hospitalization, Other)
  Sender: FDA-Public Use
  Company Number: US-JUTA GMBH-2011-21601

PATIENT
  Age: 11 Year
  Sex: Male

DRUGS (6)
  1. DIPHENHYDRAMINE HCL [Suspect]
     Indication: AGGRESSION
     Dosage: SINGLE PRN DOSE
  2. RISPERIDONE [Suspect]
     Indication: PRODUCT USED FOR UNKNOWN INDICATION
     Dosage: 3 MG, UNK
  3. RISPERIDONE [Suspect]
     Dosage: 1 MG, BID
  4. VALPROATE SODIUM [Suspect]
     Indication: MANIA
     Dosage: 750 MG, UNK
  5. VALPROATE SODIUM [Suspect]
     Dosage: 250 MG, BID
  6. CHLORPROMAZINE HCL [Suspect]
     Indication: AGGRESSION
     Dosage: UNK

REACTIONS (5)
  - DRUG INEFFECTIVE [None]
  - HYPERAMMONAEMIA [None]
  - DRUG INTERACTION [None]
  - MANIA [None]
  - VOMITING [None]
